FAERS Safety Report 21927380 (Version 2)
Quarter: 2023Q1

REPORT INFORMATION
  Report Type: Spontaneous
  Country: SI (occurrence: SI)
  Receive Date: 20230130
  Receipt Date: 20230314
  Transmission Date: 20230418
  Serious: Yes (Death, Hospitalization, Other)
  Sender: FDA-Public Use
  Company Number: SI-002147023-NVSC2023SI016398

PATIENT
  Age: 77 Year
  Sex: Male
  Weight: 111 kg

DRUGS (13)
  1. ENTRESTO [Suspect]
     Active Substance: SACUBITRIL\VALSARTAN
     Indication: Cardiac failure
     Dosage: UNK
     Route: 065
  2. ENTRESTO [Suspect]
     Active Substance: SACUBITRIL\VALSARTAN
     Dosage: 1 DOSAGE FORM, BID (97/103 MG)
     Route: 065
  3. BISOPROLOL [Suspect]
     Active Substance: BISOPROLOL
     Indication: Cardiovascular insufficiency
     Dosage: 2.5 MG
     Route: 065
  4. BISOPROLOL [Suspect]
     Active Substance: BISOPROLOL
     Dosage: 5 MG
     Route: 065
  5. FUROSEMIDE [Suspect]
     Active Substance: FUROSEMIDE
     Indication: Cardiovascular insufficiency
     Dosage: 40 MG
     Route: 065
  6. FUROSEMIDE [Suspect]
     Active Substance: FUROSEMIDE
     Dosage: UNK (EVERY OTHER DAY OR AS NEEDED)
     Route: 065
  7. ROSUVASTATIN [Suspect]
     Active Substance: ROSUVASTATIN
     Indication: Cardiovascular insufficiency
     Dosage: 20 MG
     Route: 065
  8. ALLOPURINOL [Suspect]
     Active Substance: ALLOPURINOL
     Indication: Cardiovascular insufficiency
     Dosage: 100 MG
     Route: 065
  9. ASPIRIN [Concomitant]
     Active Substance: ASPIRIN
     Indication: Cardiovascular insufficiency
     Dosage: 100 MG
     Route: 065
  10. PERINDOPRIL [Concomitant]
     Active Substance: PERINDOPRIL
     Indication: Cardiovascular insufficiency
     Dosage: 4 MG
     Route: 065
  11. AMLODIPINE [Concomitant]
     Active Substance: AMLODIPINE BESYLATE
     Indication: Cardiovascular insufficiency
     Dosage: 5 MG
     Route: 065
  12. SPIRONOLACTONE [Concomitant]
     Active Substance: SPIRONOLACTONE
     Indication: Cardiovascular insufficiency
     Dosage: 25 MG, QOD
     Route: 065
  13. DAPAGLIFLOZIN [Concomitant]
     Active Substance: DAPAGLIFLOZIN
     Indication: Cardiovascular insufficiency
     Dosage: 10 MG
     Route: 065

REACTIONS (18)
  - Pneumonia [Fatal]
  - Cardiac failure [Unknown]
  - Hyperkalaemia [Recovering/Resolving]
  - Ischaemic cardiomyopathy [Unknown]
  - Aortic stenosis [Unknown]
  - Tricuspid valve incompetence [Unknown]
  - Pulmonary hypertension [Unknown]
  - Ejection fraction decreased [Unknown]
  - Blood creatinine increased [Recovering/Resolving]
  - Glomerular filtration rate decreased [Recovering/Resolving]
  - Rales [Unknown]
  - Peripheral swelling [Recovering/Resolving]
  - Oedema peripheral [Recovering/Resolving]
  - Diastolic dysfunction [Unknown]
  - Weight increased [Recovering/Resolving]
  - Joint injury [Recovering/Resolving]
  - Tachypnoea [Recovering/Resolving]
  - Product use in unapproved indication [Unknown]
